FAERS Safety Report 10005878 (Version 1)
Quarter: 2014Q1

REPORT INFORMATION
  Report Type: Spontaneous
  Country: FR (occurrence: FR)
  Receive Date: 20140313
  Receipt Date: 20140313
  Transmission Date: 20141002
  Serious: Yes (Hospitalization)
  Sender: FDA-Public Use
  Company Number: FR-ACCORD-022474

PATIENT
  Age: 51 Year
  Sex: Male

DRUGS (9)
  1. IRINOTECAN [Suspect]
     Indication: COLON CANCER METASTATIC
     Dosage: 20 MG/ ML, 13 + 2 ?COURSES
     Route: 042
     Dates: start: 20131120, end: 20131210
  2. FLUOROURACIL [Suspect]
     Indication: COLON CANCER METASTATIC
     Dosage: 50 MG/ML (12 + 4 + 2 COURSES)
     Route: 042
     Dates: start: 20131122, end: 20131210
  3. OXALIPLATIN [Suspect]
     Indication: COLON CANCER METASTATIC
     Dosage: 5 MG/ML, (4 + 2 COURSES)
     Route: 042
     Dates: start: 20131122, end: 20131210
  4. OXYCONTIN LP [Concomitant]
  5. PROZAC [Concomitant]
  6. LASILIX [Concomitant]
  7. OXYNORM [Concomitant]
     Dosage: 5 MG AT THE REQUEST
  8. ELVORINE [Suspect]
     Indication: COLON CANCER METASTATIC
     Dosage: 12 + 4 + 2 COURSES
     Route: 042
     Dates: start: 20131122, end: 20131210
  9. AVASTIN [Suspect]
     Indication: COLON CANCER METASTATIC
     Dosage: 25 MG/ML, 12 + 4 + 2 COURSES
     Route: 042
     Dates: start: 20131122, end: 20131210

REACTIONS (3)
  - Ascites [Unknown]
  - Coronary artery disease [Recovered/Resolved]
  - Chest pain [Recovered/Resolved with Sequelae]
